FAERS Safety Report 6990605-6 (Version None)
Quarter: 2010Q3

REPORT INFORMATION
  Report Type: 
  Country: None (occurrence: None)
  Receive Date: 20100916
  Receipt Date: 20100709
  Transmission Date: 20110219
  Serious: Yes (Other)
  Sender: FDA-Public Use
  Company Number: US-PFIZER INC-2010086823

PATIENT
  Sex: Male
  Weight: 95.238 kg

DRUGS (2)
  1. LYRICA [Suspect]
     Indication: TRIGEMINAL NEURALGIA
     Dosage: 75 MG, 2X/DAY
     Route: 048
     Dates: start: 20100401
  2. METFORMIN [Concomitant]
     Indication: DIABETES MELLITUS
     Dosage: 30 MG, 1X/DAY
     Route: 048

REACTIONS (4)
  - BLOOD PRESSURE INCREASED [None]
  - DIPLOPIA [None]
  - HEADACHE [None]
  - VISION BLURRED [None]
